FAERS Safety Report 11580866 (Version 1)
Quarter: 2015Q4

REPORT INFORMATION
  Report Type: Spontaneous
  Country: US (occurrence: US)
  Receive Date: 20151001
  Receipt Date: 20151001
  Transmission Date: 20160304
  Serious: No
  Sender: FDA-Public Use
  Company Number: US-GLENMARK PHARMACEUTICALS INC, USA.-2015GMK018055

PATIENT

DRUGS (1)
  1. CLOTRIMAZOLE CREAM [Suspect]
     Active Substance: CLOTRIMAZOLE
     Indication: TINEA CRURIS
     Dosage: UNK
     Route: 061
     Dates: start: 201506, end: 20150701

REACTIONS (2)
  - Drug ineffective [Recovered/Resolved]
  - Condition aggravated [Recovered/Resolved]

NARRATIVE: CASE EVENT DATE: 2015
